FAERS Safety Report 4600916-7 (Version None)
Quarter: 2005Q1

REPORT INFORMATION
  Report Type: 
  Country: None (occurrence: None)
  Receive Date: 20050127
  Receipt Date: 20041011
  Transmission Date: 20050727
  Serious: No
  Sender: FDA-Public Use
  Company Number: USA041081981

PATIENT
  Age: 45 Year
  Sex: Male
  Weight: 73 kg

DRUGS (5)
  1. STRATTERA [Suspect]
     Indication: ATTENTION DEFICIT/HYPERACTIVITY DISORDER
     Dosage: 40 MG/1 DAY
     Dates: start: 20040607, end: 20040601
  2. FLONASE [Concomitant]
  3. HYDROCHLOROTHIAZIDE [Concomitant]
  4. TOPROL-XL [Concomitant]
  5. LIPITOR [Concomitant]

REACTIONS (2)
  - DYSGEUSIA [None]
  - HYPERHIDROSIS [None]
